FAERS Safety Report 10179699 (Version 1)
Quarter: 2014Q2

REPORT INFORMATION
  Report Type: Spontaneous
  Country: US (occurrence: None)
  Receive Date: 20140425
  Receipt Date: 20140425
  Transmission Date: 20141212
  Serious: No
  Sender: FDA-Public Use
  Company Number: AP356-00472-SPO-US

PATIENT
  Age: 45 Year
  Sex: Female
  Weight: 67.1 kg

DRUGS (4)
  1. BELVIQ (LORCASERIN HYDROCHLORIDE) [Suspect]
     Indication: WEIGHT DECREASED
     Route: 048
     Dates: start: 20140220
  2. ALLERGY MEDICATION (ALLERGY MEDICATION) [Concomitant]
  3. ESTRADIOL (ESTRADIOL) (GEL) [Concomitant]
  4. AMBIEN (ZOLPIDEM TARTRATE) [Concomitant]

REACTIONS (4)
  - Energy increased [None]
  - Feeling jittery [None]
  - Headache [None]
  - Insomnia [None]
